FAERS Safety Report 8983919 (Version 1)
Quarter: 2012Q4

REPORT INFORMATION
  Report Type: Spontaneous
  Country: US (occurrence: None)
  Receive Date: 20121218
  Receipt Date: 20121218
  Transmission Date: 20130627
  Serious: No
  Sender: FDA-Public Use
  Company Number: None

PATIENT
  Age: 51 Year
  Sex: Female
  Weight: 66.23 kg

DRUGS (1)
  1. ATORVASTATIN [Suspect]
     Dates: start: 20121130, end: 20121230

REACTIONS (4)
  - Hot flush [None]
  - Feeling abnormal [None]
  - Palpitations [None]
  - Abdominal pain [None]
